FAERS Safety Report 9381432 (Version 2)
Quarter: 2013Q3

REPORT INFORMATION
  Report Type: Spontaneous
  Country: AU (occurrence: AU)
  Receive Date: 20130703
  Receipt Date: 20130710
  Transmission Date: 20140515
  Serious: Yes (Death, Other)
  Sender: FDA-Public Use
  Company Number: PHHY2013AU068278

PATIENT
  Age: 72 Year
  Sex: Female

DRUGS (6)
  1. AFINITOR [Suspect]
     Indication: BREAST CANCER
     Dosage: 10 MG, DAILY
     Route: 048
     Dates: start: 20130531, end: 20130611
  2. EXEMESTANE [Suspect]
     Indication: BREAST CANCER
     Dosage: 25 MG, DAILY
     Route: 048
     Dates: start: 20130531, end: 20130611
  3. ATIVAN [Concomitant]
     Indication: ANXIETY
     Dosage: 3 MG, DAILY
     Route: 048
     Dates: start: 201304
  4. DEXAMETHASONE [Concomitant]
     Indication: HEPATIC PAIN
     Dosage: 4 MG, DAILY
     Route: 048
     Dates: start: 201304
  5. ATACAND [Concomitant]
     Indication: HYPERTENSION
     Dosage: 4 MG, DAILY
     Route: 048
  6. INTRAGAM [Concomitant]
     Route: 042
     Dates: start: 2007, end: 20130611

REACTIONS (10)
  - Breast cancer [Fatal]
  - Carbohydrate antigen 15-3 increased [Fatal]
  - Malignant neoplasm progression [Fatal]
  - Metastases to liver [Fatal]
  - Liver function test abnormal [Unknown]
  - Aspartate aminotransferase increased [Unknown]
  - Alanine aminotransferase increased [Unknown]
  - Gamma-glutamyltransferase increased [Unknown]
  - Blood alkaline phosphatase increased [Unknown]
  - Blood bilirubin increased [Unknown]
